FAERS Safety Report 20203852 (Version 1)
Quarter: 2021Q4

REPORT INFORMATION
  Report Type: Report from Study
  Country: US (occurrence: US)
  Receive Date: 20211219
  Receipt Date: 20211219
  Transmission Date: 20220304
  Serious: Yes (Hospitalization)
  Sender: FDA-Public Use
  Company Number: US-SHIRE-US202026165

PATIENT
  Age: 65 Year
  Sex: Female

DRUGS (8)
  1. TEDUGLUTIDE [Suspect]
     Active Substance: TEDUGLUTIDE
     Indication: Malabsorption
     Dosage: 1.45 MILLIGRAM, 1X/DAY:QD
     Route: 058
     Dates: start: 20190423
  2. TEDUGLUTIDE [Suspect]
     Active Substance: TEDUGLUTIDE
     Indication: Malabsorption
     Dosage: 1.45 MILLIGRAM, 1X/DAY:QD
     Route: 058
     Dates: start: 20190423
  3. TEDUGLUTIDE [Suspect]
     Active Substance: TEDUGLUTIDE
     Indication: Malabsorption
     Dosage: 1.45 MILLIGRAM, 1X/DAY:QD
     Route: 058
     Dates: start: 20190423
  4. TEDUGLUTIDE [Suspect]
     Active Substance: TEDUGLUTIDE
     Indication: Malabsorption
     Dosage: 1.45 MILLIGRAM, 1X/DAY:QD
     Route: 058
     Dates: start: 20190423
  5. TEDUGLUTIDE [Suspect]
     Active Substance: TEDUGLUTIDE
     Dosage: 5 MILLIGRAM, QD
     Route: 058
     Dates: start: 20190423
  6. TEDUGLUTIDE [Suspect]
     Active Substance: TEDUGLUTIDE
     Dosage: 5 MILLIGRAM, QD
     Route: 058
     Dates: start: 20190423
  7. TEDUGLUTIDE [Suspect]
     Active Substance: TEDUGLUTIDE
     Dosage: 5 MILLIGRAM, QD
     Route: 058
     Dates: start: 20190423
  8. TEDUGLUTIDE [Suspect]
     Active Substance: TEDUGLUTIDE
     Dosage: 5 MILLIGRAM, QD
     Route: 058
     Dates: start: 20190423

REACTIONS (3)
  - Hepatic enzyme abnormal [Recovering/Resolving]
  - Dehydration [Unknown]
  - Intentional product use issue [Unknown]

NARRATIVE: CASE EVENT DATE: 20190423
